FAERS Safety Report 17295770 (Version 1)
Quarter: 2020Q1

REPORT INFORMATION
  Report Type: Spontaneous
  Country: US (occurrence: US)
  Receive Date: 20200121
  Receipt Date: 20200121
  Transmission Date: 20200409
  Serious: Yes (Other)
  Sender: FDA-Public Use
  Company Number: US-CURIUM-199300141

PATIENT

DRUGS (1)
  1. TECHNESCAN PYP [Suspect]
     Active Substance: TECHNETIUM TC-99M PYROPHOSPHATE
     Indication: RADIOISOTOPE SCAN
     Route: 065

REACTIONS (5)
  - Hyperhidrosis [Recovered/Resolved]
  - Blood pressure decreased [Recovered/Resolved]
  - Syncope [Recovered/Resolved]
  - Flushing [Recovered/Resolved]
  - Dyspnoea [Recovered/Resolved]
